FAERS Safety Report 9090477 (Version 1)
Quarter: 2013Q1

REPORT INFORMATION
  Report Type: Spontaneous
  Country: US (occurrence: US)
  Receive Date: 20130201
  Receipt Date: 20130201
  Transmission Date: 20140127
  Serious: No
  Sender: FDA-Public Use
  Company Number: US-009507513-1302USA000356

PATIENT
  Age: 35 None
  Sex: Male
  Weight: 117.91 kg

DRUGS (2)
  1. CLARITIN-D 12 HOUR [Suspect]
     Indication: PRODUCT USED FOR UNKNOWN INDICATION
     Dosage: UNK, UNKNOWN
     Route: 048
     Dates: start: 20130107, end: 20130108
  2. CLARITIN-D 12 HOUR [Suspect]
     Indication: MEDICAL OBSERVATION

REACTIONS (1)
  - Panic attack [Recovered/Resolved]
